FAERS Safety Report 9848300 (Version 1)
Quarter: 2014Q1

REPORT INFORMATION
  Report Type: Spontaneous
  Country: US (occurrence: None)
  Receive Date: 20140123
  Receipt Date: 20140123
  Transmission Date: 20141002
  Serious: Yes (Hospitalization)
  Sender: FDA-Public Use
  Company Number: None

PATIENT
  Age: 58 Year
  Sex: Male

DRUGS (1)
  1. IMBRUVICA [Suspect]
     Route: 048
     Dates: start: 20131120, end: 20140118

REACTIONS (4)
  - Rash generalised [None]
  - Local swelling [None]
  - Dyspnoea [None]
  - Atrial fibrillation [None]
